FAERS Safety Report 4994489-7 (Version None)
Quarter: 2006Q2

REPORT INFORMATION
  Report Type: 
  Country: None (occurrence: None)
  Receive Date: 20060505
  Receipt Date: 20050812
  Transmission Date: 20061013
  Serious: Yes (Hospitalization, Disabling)
  Sender: FDA-Public Use
  Company Number: US-MERCK-0508USA02627

PATIENT
  Age: 67 Year
  Sex: Female
  Weight: 91 kg

DRUGS (8)
  1. VIOXX [Suspect]
     Indication: RHEUMATOID ARTHRITIS
     Route: 048
  2. VIOXX [Suspect]
     Route: 048
     Dates: start: 20040701, end: 20040711
  3. VIOXX [Suspect]
     Route: 048
     Dates: end: 20040701
  4. ASPIRIN [Concomitant]
     Route: 065
     Dates: start: 19950101
  5. TEMAZEPAM [Concomitant]
     Route: 065
  6. ACETAMINOPHEN AND PROPOXYPHENE NAPSYLATE [Concomitant]
     Route: 065
  7. PRILOSEC [Concomitant]
     Route: 065
  8. ALLOPURINOL [Concomitant]
     Route: 065
     Dates: start: 19950101

REACTIONS (10)
  - ANGINA UNSTABLE [None]
  - ARTERIOSCLEROSIS CORONARY ARTERY [None]
  - CEREBRAL INFARCTION [None]
  - CEREBROVASCULAR ACCIDENT [None]
  - DYSLIPIDAEMIA [None]
  - GASTROOESOPHAGEAL REFLUX DISEASE [None]
  - INJURY [None]
  - MYOCARDIAL INFARCTION [None]
  - NEPHROPATHY TOXIC [None]
  - RENAL ARTERY STENOSIS [None]
